FAERS Safety Report 23976029 (Version 2)
Quarter: 2024Q2

REPORT INFORMATION
  Report Type: Spontaneous
  Country: US (occurrence: US)
  Receive Date: 20240614
  Receipt Date: 20240627
  Transmission Date: 20240716
  Serious: Yes (Life-Threatening)
  Sender: FDA-Public Use
  Company Number: US-002147023-NVSC2024US124301

PATIENT
  Sex: Male

DRUGS (1)
  1. COSENTYX [Suspect]
     Active Substance: SECUKINUMAB
     Indication: Product used for unknown indication
     Dosage: UNK
     Route: 065

REACTIONS (10)
  - Skin exfoliation [Unknown]
  - Wound [Unknown]
  - Insomnia [Unknown]
  - Skin disorder [Unknown]
  - Scar [Unknown]
  - Limb discomfort [Unknown]
  - Feeling abnormal [Unknown]
  - Hidradenitis [Unknown]
  - Pain [Recovering/Resolving]
  - Illness [Unknown]
